FAERS Safety Report 5956957-0 (Version None)
Quarter: 2008Q4

REPORT INFORMATION
  Report Type: 
  Country: None (occurrence: None)
  Receive Date: 20081118
  Receipt Date: 20081113
  Transmission Date: 20090506
  Serious: Yes (Other)
  Sender: FDA-Public Use
  Company Number: JP-ABBOTT-08P-087-0488039-00

PATIENT

DRUGS (3)
  1. REMIFENTANIL [Suspect]
     Indication: GENERAL ANAESTHESIA
     Route: 065
  2. PROPOFOL [Concomitant]
     Indication: GENERAL ANAESTHESIA
     Dosage: NOT REPORTED
  3. SEVOFLURANE [Concomitant]
     Indication: GENERAL ANAESTHESIA
     Route: 065

REACTIONS (1)
  - VOCAL CORD DISORDER [None]
